FAERS Safety Report 19431092 (Version 1)
Quarter: 2021Q2

REPORT INFORMATION
  Report Type: Spontaneous
  Country: US (occurrence: US)
  Receive Date: 20210618
  Receipt Date: 20210618
  Transmission Date: 20210717
  Serious: Yes (Hospitalization)
  Sender: FDA-Public Use
  Company Number: US-ROCHE-2749632

PATIENT
  Age: 66 Year
  Sex: Female

DRUGS (16)
  1. ACTEMRA [Suspect]
     Active Substance: TOCILIZUMAB
     Indication: RHEUMATOID ARTHRITIS
     Route: 058
     Dates: start: 20180307
  2. VENLAFAXINE [Concomitant]
     Active Substance: VENLAFAXINE HYDROCHLORIDE
  3. BAQSIMI [Concomitant]
     Active Substance: GLUCAGON
  4. PHENAZOPYRIDINE. [Concomitant]
     Active Substance: PHENAZOPYRIDINE
  5. GABAPENTIN. [Concomitant]
     Active Substance: GABAPENTIN
  6. CELECOXIB. [Concomitant]
     Active Substance: CELECOXIB
  7. METFORMIN [Concomitant]
     Active Substance: METFORMIN HYDROCHLORIDE
  8. DARIFENACIN. [Concomitant]
     Active Substance: DARIFENACIN
  9. PANTOPRAZOLE [Concomitant]
     Active Substance: PANTOPRAZOLE
  10. XTAMPZA ER [Concomitant]
     Active Substance: OXYCODONE
  11. LANTUS [Concomitant]
     Active Substance: INSULIN GLARGINE
  12. SMZ?TMP DS [Concomitant]
     Active Substance: SULFAMETHOXAZOLE\TRIMETHOPRIM
  13. FENOFIBRATE. [Concomitant]
     Active Substance: FENOFIBRATE
  14. OXYCODONE [Concomitant]
     Active Substance: OXYCODONE
  15. TRAZODONE [Concomitant]
     Active Substance: TRAZODONE HYDROCHLORIDE
  16. LEVOTHYROXINE. [Concomitant]
     Active Substance: LEVOTHYROXINE

REACTIONS (1)
  - Pneumonia [Recovered/Resolved]
